FAERS Safety Report 4915929-5 (Version None)
Quarter: 2006Q1

REPORT INFORMATION
  Report Type: 
  Country: None (occurrence: None)
  Receive Date: 20060217
  Receipt Date: 20051202
  Transmission Date: 20060701
  Serious: Yes (Other)
  Sender: FDA-Public Use
  Company Number: JP-AVENTIS-200513641JP

PATIENT
  Age: 29 Year
  Sex: Female
  Weight: 53.8 kg

DRUGS (3)
  1. LANTUS [Suspect]
     Indication: DIABETES MELLITUS INSULIN-DEPENDENT
     Route: 058
     Dates: end: 20051028
  2. OPTICLIK (INSULIN INJECTION PEN) [Suspect]
  3. NOVORAPID [Concomitant]
     Indication: DIABETES MELLITUS INSULIN-DEPENDENT
     Dosage: DOSE: 5-12-12; DOSE UNIT: UNITS
     Route: 058

REACTIONS (3)
  - HYPOAESTHESIA [None]
  - HYPOGLYCAEMIA UNAWARENESS [None]
  - ILLUSION [None]
